FAERS Safety Report 6137063-1 (Version None)
Quarter: 2009Q1

REPORT INFORMATION
  Report Type: 
  Country: None (occurrence: None)
  Receive Date: 20090326
  Receipt Date: 20090326
  Transmission Date: 20090719
  Serious: Yes (Hospitalization)
  Sender: FDA-Public Use
  Company Number: None

PATIENT
  Sex: Male
  Weight: 73.0291 kg

DRUGS (5)
  1. LENALIDOMIDE [Suspect]
     Indication: HEPATIC NEOPLASM MALIGNANT
     Dosage: 20 MG DAILY BY MOUTH
     Route: 048
     Dates: start: 20090220, end: 20090310
  2. METAPROLOL [Concomitant]
  3. REMERON [Concomitant]
  4. MIRALAX [Concomitant]
  5. OMEPRAZOLE [Concomitant]

REACTIONS (2)
  - FALL [None]
  - SYNCOPE [None]
